FAERS Safety Report 18414847 (Version 1)
Quarter: 2020Q4

REPORT INFORMATION
  Report Type: Spontaneous
  Country: US (occurrence: US)
  Receive Date: 20201022
  Receipt Date: 20201022
  Transmission Date: 20210114
  Serious: Yes (Life-Threatening)
  Sender: FDA-Public Use
  Company Number: None

PATIENT
  Age: 45 Year
  Sex: Female
  Weight: 78.3 kg

DRUGS (8)
  1. METFORMIN [Concomitant]
     Active Substance: METFORMIN HYDROCHLORIDE
  2. VITAMIN B12 [Concomitant]
     Active Substance: CYANOCOBALAMIN
  3. AIMOVIG [Suspect]
     Active Substance: ERENUMAB-AOOE
     Indication: MIGRAINE
     Dosage: ?          QUANTITY:1 INJECTION(S);OTHER FREQUENCY:ONCE A MONTH;?
     Route: 058
  4. EMGALITY [Suspect]
     Active Substance: GALCANEZUMAB-GNLM
  5. MAGNESIUM [Concomitant]
     Active Substance: MAGNESIUM
  6. ASA [Concomitant]
     Active Substance: ASPIRIN
  7. ROSUVASTATIN. [Concomitant]
     Active Substance: ROSUVASTATIN
  8. VIT D [Concomitant]
     Active Substance: VITAMIN D NOS

REACTIONS (5)
  - Weight increased [None]
  - Muscle spasms [None]
  - Fibrin D dimer increased [None]
  - Chest pain [None]
  - Chest discomfort [None]
